FAERS Safety Report 15836454 (Version 1)
Quarter: 2018Q4

REPORT INFORMATION
  Report Type: Spontaneous
  Country: US (occurrence: US)
  Receive Date: 20181221
  Receipt Date: 20181221
  Transmission Date: 20190205
  Serious: Yes (Hospitalization)
  Sender: FDA-Public Use
  Company Number: None

PATIENT
  Age: 59 Year
  Sex: Male

DRUGS (2)
  1. HUMIRA [Suspect]
     Active Substance: ADALIMUMAB
     Indication: RHEUMATOID ARTHRITIS
     Route: 058
     Dates: start: 20180209
  2. HUMIRA [Suspect]
     Active Substance: ADALIMUMAB
     Indication: HIDRADENITIS

REACTIONS (1)
  - Sepsis [None]

NARRATIVE: CASE EVENT DATE: 20181120
